FAERS Safety Report 7268144-7 (Version None)
Quarter: 2010Q4

REPORT INFORMATION
  Report Type: 
  Country: None (occurrence: None)
  Receive Date: 20101206
  Receipt Date: 20100609
  Transmission Date: 20110411
  Serious: Yes (Other)
  Sender: FDA-Public Use
  Company Number: 2010SP032581

PATIENT
  Age: 51 Year
  Sex: Female

DRUGS (7)
  1. SAPHRIS [Suspect]
     Indication: BIPOLAR DISORDER
     Dosage: 5 MG; BID; SL
     Route: 060
     Dates: start: 20100501
  2. LAMOTRIGINE [Concomitant]
  3. WELLBUTRIN [Concomitant]
  4. EVOXAC [Concomitant]
  5. PLAQUENIL [Concomitant]
  6. SYNTHROID [Concomitant]
  7. RESTASIS [Concomitant]

REACTIONS (5)
  - DIZZINESS [None]
  - DYSGEUSIA [None]
  - DYSKINESIA [None]
  - HYPOAESTHESIA ORAL [None]
  - NAUSEA [None]
